FAERS Safety Report 25552913 (Version 1)
Quarter: 2025Q3

REPORT INFORMATION
  Report Type: Spontaneous
  Country: GH (occurrence: GH)
  Receive Date: 20250715
  Receipt Date: 20250715
  Transmission Date: 20251020
  Serious: Yes (Other)
  Sender: JOHNSON AND JOHNSON
  Company Number: GH-JNJFOC-20250716936

PATIENT
  Age: 66 Year
  Sex: Female

DRUGS (3)
  1. XARELTO [Suspect]
     Active Substance: RIVAROXABAN
     Indication: Pulmonary embolism
  2. XARELTO [Suspect]
     Active Substance: RIVAROXABAN
     Indication: Deep vein thrombosis
  3. XARELTO [Suspect]
     Active Substance: RIVAROXABAN
     Indication: Hypertension

REACTIONS (3)
  - Deep vein thrombosis [Unknown]
  - Thrombosis [Unknown]
  - Peripheral swelling [Unknown]
